FAERS Safety Report 8088071 (Version 2)
Quarter: 2015Q4

REPORT INFORMATION
  Report Type: Spontaneous
  Country: US (occurrence: US)
  Receive Date: 20110812
  Receipt Date: 20151023
  Transmission Date: 20160305
  Serious: Yes (Hospitalization)
  Sender: FDA-Public Use
  Company Number: US-BAYER-2011-070827

PATIENT
  Age: 32 Year
  Sex: Female
  Weight: 113.38 kg

DRUGS (4)
  1. NSAID^S [Concomitant]
     Active Substance: UNSPECIFIED INGREDIENT
  2. MOTRIN [Concomitant]
     Active Substance: IBUPROFEN
     Indication: MIGRAINE
     Dosage: PRN
     Route: 048
  3. CELEBREX [Concomitant]
     Active Substance: CELECOXIB
     Indication: PAIN IN EXTREMITY
     Dosage: UNK
     Route: 048
     Dates: start: 20020112
  4. YASMIN [Suspect]
     Active Substance: DROSPIRENONE\ETHINYL ESTRADIOL
     Dosage: UNK
     Dates: start: 200110, end: 200201

REACTIONS (7)
  - Pulmonary embolism [None]
  - Deep vein thrombosis [Recovered/Resolved]
  - Chest pain [None]
  - Mental disorder [None]
  - Anhedonia [None]
  - Anxiety [None]
  - Injury [None]

NARRATIVE: CASE EVENT DATE: 20020115
